FAERS Safety Report 8107139-8 (Version None)
Quarter: 2012Q1

REPORT INFORMATION
  Report Type: 
  Country: None (occurrence: None)
  Receive Date: 20120202
  Receipt Date: 20120130
  Transmission Date: 20120608
  Serious: Yes (Congenital Anomaly, Other)
  Sender: FDA-Public Use
  Company Number: US-PFIZER INC-2007095375

PATIENT
  Sex: Male
  Weight: 3 kg

DRUGS (2)
  1. ZOLOFT [Suspect]
     Indication: ANXIETY
  2. ZOLOFT [Suspect]
     Indication: POSTPARTUM DEPRESSION
     Dosage: 100 MG, 1X/DAY
     Route: 064
     Dates: start: 20040901

REACTIONS (10)
  - FOETAL EXPOSURE DURING PREGNANCY [None]
  - DYSPNOEA [None]
  - LARYNGEAL STENOSIS [None]
  - WEIGHT GAIN POOR [None]
  - FALLOT'S TETRALOGY [None]
  - GASTROOESOPHAGEAL REFLUX DISEASE [None]
  - DEVELOPMENTAL DELAY [None]
  - DEAFNESS [None]
  - VOCAL CORD DISORDER [None]
  - ASPIRATION TRACHEAL [None]
